FAERS Safety Report 21326264 (Version 3)
Quarter: 2022Q4

REPORT INFORMATION
  Report Type: Spontaneous
  Country: BR (occurrence: BR)
  Receive Date: 20220913
  Receipt Date: 20221025
  Transmission Date: 20230113
  Serious: Yes (Other)
  Sender: FDA-Public Use
  Company Number: BR-NOVARTISPH-NVSC2022BR201062

PATIENT
  Sex: Female
  Weight: 68 kg

DRUGS (2)
  1. TAMOXIFEN CITRATE [Suspect]
     Active Substance: TAMOXIFEN CITRATE
     Indication: Breast cancer
     Dosage: 20 MG
     Route: 065
     Dates: start: 202012
  2. LOSARTAN [Concomitant]
     Active Substance: LOSARTAN
     Indication: Hypertension
     Dosage: 50 MG, QD (1 TABLET DAILY)
     Route: 065

REACTIONS (3)
  - Cholelithiasis [Unknown]
  - Abdominal pain upper [Unknown]
  - Liver disorder [Unknown]
